FAERS Safety Report 7814031-2 (Version None)
Quarter: 2011Q4

REPORT INFORMATION
  Report Type: 
  Country: None (occurrence: None)
  Receive Date: 20111014
  Receipt Date: 20111007
  Transmission Date: 20120403
  Serious: Yes (Death)
  Sender: FDA-Public Use
  Company Number: MX-UCBSA-043027

PATIENT
  Age: 70 Year
  Sex: Female
  Weight: 50 kg

DRUGS (4)
  1. CARBAMAZEPINE [Concomitant]
     Indication: EPILEPSY
     Route: 048
     Dates: start: 20080101, end: 20110907
  2. TRILEPTAL [Concomitant]
     Indication: EPILEPSY
     Route: 048
     Dates: start: 20080101, end: 20110907
  3. CRIAM [Concomitant]
     Indication: EPILEPSY
     Route: 048
     Dates: start: 20110301, end: 20110907
  4. VIMPAT [Suspect]
     Indication: EPILEPSY
     Route: 048
     Dates: start: 20110301, end: 20110907

REACTIONS (2)
  - ACUTE MYOCARDIAL INFARCTION [None]
  - MULTI-ORGAN FAILURE [None]
